FAERS Safety Report 5895666-3 (Version None)
Quarter: 2008Q3

REPORT INFORMATION
  Report Type: 
  Country: None (occurrence: None)
  Receive Date: 20080924
  Receipt Date: 20071009
  Transmission Date: 20090109
  Serious: No
  Sender: FDA-Public Use
  Company Number: US-BAYER-200713768BWH

PATIENT
  Sex: Female

DRUGS (2)
  1. CIPRO [Suspect]
     Indication: URINARY TRACT INFECTION
     Route: 048
     Dates: start: 20071008
  2. ORTHO TRI-CYCLEN LO [Concomitant]

REACTIONS (1)
  - DIZZINESS [None]
